FAERS Safety Report 5274146-2 (Version None)
Quarter: 2007Q1

REPORT INFORMATION
  Report Type: 
  Country: None (occurrence: None)
  Receive Date: 20070323
  Receipt Date: 20070316
  Transmission Date: 20070707
  Serious: Yes (Other)
  Sender: FDA-Public Use
  Company Number: US-ABBOTT-07P-163-0362382-00

PATIENT
  Sex: Male

DRUGS (4)
  1. HUMIRA [Suspect]
     Indication: RHEUMATOID ARTHRITIS
     Dates: start: 20040101, end: 20050101
  2. ETANERCEPT [Suspect]
     Indication: RHEUMATOID ARTHRITIS
     Dates: start: 20040101, end: 20040101
  3. PREDNISONE [Concomitant]
     Indication: RHEUMATOID ARTHRITIS
  4. NAPROXEN SODIUM [Concomitant]
     Indication: RHEUMATOID ARTHRITIS

REACTIONS (2)
  - NECK MASS [None]
  - NON-HODGKIN'S LYMPHOMA [None]
